FAERS Safety Report 14952560 (Version 2)
Quarter: 2018Q2

REPORT INFORMATION
  Report Type: Spontaneous
  Country: US (occurrence: US)
  Receive Date: 20180530
  Receipt Date: 20180531
  Transmission Date: 20180711
  Serious: No
  Sender: FDA-Public Use
  Company Number: US-PFIZER INC-2018216833

PATIENT
  Sex: Female

DRUGS (3)
  1. ZOLOFT [Suspect]
     Active Substance: SERTRALINE HYDROCHLORIDE
     Dosage: 50 MG, UNK
     Dates: start: 201805
  2. BABY ASPIRIN [Suspect]
     Active Substance: ASPIRIN
     Dosage: UNK
  3. ZOLOFT [Suspect]
     Active Substance: SERTRALINE HYDROCHLORIDE
     Dosage: 15 MG, UNK

REACTIONS (5)
  - Insomnia [Unknown]
  - Fatigue [Unknown]
  - Drug dose omission [Unknown]
  - Epistaxis [Unknown]
  - Anxiety [Unknown]

NARRATIVE: CASE EVENT DATE: 201805
